FAERS Safety Report 11093987 (Version 1)
Quarter: 2015Q2

REPORT INFORMATION
  Report Type: Spontaneous
  Country: US (occurrence: None)
  Receive Date: 20150428
  Receipt Date: 20150428
  Transmission Date: 20150821
  Serious: Yes (Other)
  Sender: FDA-Public Use
  Company Number: PHEH2014US018924

PATIENT
  Age: 47 Year
  Sex: Female
  Weight: 65.8 kg

DRUGS (1)
  1. GILENYA [Suspect]
     Active Substance: FINGOLIMOD HYDROCHLORIDE
     Indication: MULTIPLE SCLEROSIS
     Route: 048
     Dates: start: 20140820, end: 20140915

REACTIONS (4)
  - Pain in extremity [None]
  - Chest pain [None]
  - Liver function test abnormal [None]
  - Muscular weakness [None]

NARRATIVE: CASE EVENT DATE: 20140906
